FAERS Safety Report 9618082 (Version 1)
Quarter: 2013Q4

REPORT INFORMATION
  Report Type: Spontaneous
  Country: FR (occurrence: FR)
  Receive Date: 20131012
  Receipt Date: 20131012
  Transmission Date: 20140711
  Serious: Yes (Hospitalization)
  Sender: FDA-Public Use
  Company Number: FR-BRISTOL-MYERS SQUIBB COMPANY-19506906

PATIENT
  Age: 47 Year
  Sex: Male

DRUGS (12)
  1. COUMADIN TABS 2 MG [Suspect]
     Dosage: 1DF:3TABS.DOSE REDUCED TO 6 MG/D TO 4 MG/D
     Route: 048
     Dates: end: 20130716
  2. KARDEGIC [Concomitant]
  3. TRANSIPEG [Concomitant]
  4. LANTUS [Concomitant]
  5. TAHOR [Concomitant]
  6. KEPPRA [Concomitant]
  7. COVERSYL [Concomitant]
  8. HUMALOG [Concomitant]
  9. KAYEXALATE [Concomitant]
  10. CARDENSIEL [Concomitant]
  11. CONTRAMAL [Concomitant]
  12. PROCORALAN [Concomitant]

REACTIONS (3)
  - Haemorrhage [Recovered/Resolved]
  - International normalised ratio increased [Recovered/Resolved]
  - Overdose [Unknown]
